FAERS Safety Report 6808151-9 (Version None)
Quarter: 2010Q2

REPORT INFORMATION
  Report Type: 
  Country: None (occurrence: None)
  Receive Date: 20100629
  Receipt Date: 20090210
  Transmission Date: 20101027
  Serious: No
  Sender: FDA-Public Use
  Company Number: US-PFIZER INC-2009171374

PATIENT
  Age: 32 Year
  Sex: Male
  Weight: 90.718 kg

DRUGS (1)
  1. XANAX XR [Suspect]
     Indication: ANXIETY
     Dosage: 2 MG, 1X/DAY
     Dates: start: 20090207

REACTIONS (1)
  - DRUG EFFECT DECREASED [None]
